FAERS Safety Report 19247811 (Version 9)
Quarter: 2021Q4

REPORT INFORMATION
  Report Type: Report from Study
  Country: US (occurrence: US)
  Receive Date: 20210512
  Receipt Date: 20211101
  Transmission Date: 20220303
  Serious: Yes (Hospitalization)
  Sender: FDA-Public Use
  Company Number: US-PFIZER INC-2021504540

PATIENT
  Age: 13 Year
  Sex: Male
  Weight: 25 kg

DRUGS (53)
  1. SIROLIMUS [Suspect]
     Active Substance: SIROLIMUS
     Indication: Immunosuppression
     Dosage: 0.92 MG, 3X/DAY
     Route: 050
     Dates: start: 20210309, end: 20210309
  2. SIROLIMUS [Suspect]
     Active Substance: SIROLIMUS
     Dosage: 0.2 MG, 2X/DAY
     Route: 050
     Dates: start: 20210310, end: 20210312
  3. SIROLIMUS [Suspect]
     Active Substance: SIROLIMUS
     Dosage: 0.1 MG, 2X/DAY
     Route: 050
     Dates: start: 20210313, end: 20210319
  4. SIROLIMUS [Suspect]
     Active Substance: SIROLIMUS
     Dosage: 0.15 MG, 2X/DAY
     Route: 050
     Dates: start: 20210320, end: 20210419
  5. SIROLIMUS [Suspect]
     Active Substance: SIROLIMUS
     Dosage: 0.15 MG, SINGLE
     Route: 050
     Dates: start: 20210420, end: 20210420
  6. SIROLIMUS [Suspect]
     Active Substance: SIROLIMUS
     Dosage: 0.12 MG, SINGLE
     Route: 050
     Dates: start: 20210420, end: 20210420
  7. SIROLIMUS [Suspect]
     Active Substance: SIROLIMUS
     Dosage: 0.12 MG, 2X/DAY
     Route: 050
     Dates: start: 20210421, end: 20210426
  8. SIROLIMUS [Suspect]
     Active Substance: SIROLIMUS
     Dosage: 0.12 MG, SINGLE
     Route: 050
     Dates: start: 20210427, end: 20210427
  9. SIROLIMUS [Suspect]
     Active Substance: SIROLIMUS
     Dosage: 0.1 MG, SINGLE
     Route: 050
     Dates: start: 20210427, end: 20210427
  10. SIROLIMUS [Suspect]
     Active Substance: SIROLIMUS
     Dosage: 0.1 MG, 2X/DAY
     Route: 050
     Dates: start: 20210428
  11. BACTRIM [Suspect]
     Active Substance: SULFAMETHOXAZOLE\TRIMETHOPRIM
     Indication: Pneumocystis jirovecii pneumonia
     Dosage: 123.2 MG, 3X/WEEKLY
     Route: 050
     Dates: start: 20210309, end: 20210325
  12. BACTRIM [Suspect]
     Active Substance: SULFAMETHOXAZOLE\TRIMETHOPRIM
     Dosage: 124 MG, 3X/WEEKLY
     Route: 050
     Dates: start: 20210326
  13. TACROLIMUS [Suspect]
     Active Substance: TACROLIMUS
     Indication: Immunosuppression
     Dosage: 1.25 MG, 2X/DAY
     Route: 050
     Dates: start: 20210312, end: 20210314
  14. TACROLIMUS [Suspect]
     Active Substance: TACROLIMUS
     Dosage: 1.25 MG, SINGLE
     Route: 050
     Dates: start: 20210315, end: 20210315
  15. TACROLIMUS [Suspect]
     Active Substance: TACROLIMUS
     Dosage: 1 MG, SINGLE
     Route: 050
     Dates: start: 20210315, end: 20210315
  16. TACROLIMUS [Suspect]
     Active Substance: TACROLIMUS
     Dosage: 1 MG, 2X/DAY
     Route: 050
     Dates: start: 20210316, end: 20210324
  17. TACROLIMUS [Suspect]
     Active Substance: TACROLIMUS
     Dosage: 0.8 MG, SINGLE
     Route: 050
     Dates: start: 20210325, end: 20210325
  18. TACROLIMUS [Suspect]
     Active Substance: TACROLIMUS
     Dosage: 1 MG, SINGLE
     Route: 050
     Dates: start: 20210325, end: 20210325
  19. TACROLIMUS [Suspect]
     Active Substance: TACROLIMUS
     Dosage: 0.8 MG, 2X/DAY
     Route: 050
     Dates: start: 20210326, end: 20210404
  20. TACROLIMUS [Suspect]
     Active Substance: TACROLIMUS
     Dosage: 0.6 MG, 2X/DAY
     Route: 050
     Dates: start: 20210405, end: 20210407
  21. TACROLIMUS [Suspect]
     Active Substance: TACROLIMUS
     Dosage: 0.6 MG, SINGLE
     Route: 050
     Dates: start: 20210408, end: 20210408
  22. TACROLIMUS [Suspect]
     Active Substance: TACROLIMUS
     Dosage: 0.7 MG, SINGLE
     Route: 050
     Dates: start: 20210408, end: 20210408
  23. TACROLIMUS [Suspect]
     Active Substance: TACROLIMUS
     Dosage: 0.7 MG, 2X/DAY
     Route: 050
     Dates: start: 20210409, end: 20210419
  24. TACROLIMUS [Suspect]
     Active Substance: TACROLIMUS
     Dosage: 0.7 MG, SINGLE
     Route: 050
     Dates: start: 20210420, end: 20210420
  25. TACROLIMUS [Suspect]
     Active Substance: TACROLIMUS
     Dosage: 0.55 MG, SINGLE
     Route: 050
     Dates: start: 20210420, end: 20210420
  26. TACROLIMUS [Suspect]
     Active Substance: TACROLIMUS
     Dosage: 0.55 MG, 2X/DAY
     Route: 050
     Dates: start: 20210421
  27. PREDNISOLONE [Suspect]
     Active Substance: PREDNISOLONE
     Indication: Immunosuppression
     Dosage: 12.3 MG, 1X/DAY, PREDNISOLONE SODIUM PHOSPHATE
     Route: 050
     Dates: start: 20210312, end: 20210325
  28. PREDNISOLONE [Suspect]
     Active Substance: PREDNISOLONE
     Dosage: 8.7 MG, 1X/DAY, PREDNISOLONE SODIUM PHOSPHATE
     Route: 050
     Dates: start: 20210326, end: 20210408
  29. PREDNISOLONE [Suspect]
     Active Substance: PREDNISOLONE
     Dosage: 4.8 MG, 1X/DAY, PREDNISOLONE SODIUM PHOSPHATE
     Route: 050
     Dates: start: 20210409, end: 20210517
  30. PREDNISOLONE [Suspect]
     Active Substance: PREDNISOLONE
     Dosage: 13.5 MG, 1X/DAY, PREDNISOLONE SODIUM PHOSPHATE
     Route: 050
     Dates: start: 20210518, end: 20210521
  31. DEXAMETHASONE [Suspect]
     Active Substance: DEXAMETHASONE
     Indication: Oral candidiasis
     Dosage: 1 SWAB APPLICATION, 4X/DAY
     Route: 048
     Dates: start: 20210420, end: 20210505
  32. DEXAMETHASONE [Suspect]
     Active Substance: DEXAMETHASONE
     Indication: Anaesthesia
     Dosage: 8 MG, SINGLE
     Route: 042
     Dates: start: 20210428, end: 20210428
  33. DEXAMETHASONE [Suspect]
     Active Substance: DEXAMETHASONE
     Dosage: 18 MG, SINGLE
     Route: 042
     Dates: start: 20210512, end: 20210512
  34. DEXAMETHASONE [Suspect]
     Active Substance: DEXAMETHASONE
     Dosage: 2 MG, 1X/DAY
     Route: 050
     Dates: start: 20210522
  35. DIPHENHYDRAMINE [Concomitant]
     Active Substance: DIPHENHYDRAMINE
     Dosage: UNK
     Dates: start: 20090214
  36. IBUPROFEN [Concomitant]
     Active Substance: IBUPROFEN
     Dosage: UNK
     Dates: start: 201208
  37. FAMOTIDINE [Concomitant]
     Active Substance: FAMOTIDINE
     Dosage: UNK
     Dates: start: 202009
  38. GABAPENTIN [Concomitant]
     Active Substance: GABAPENTIN
     Dosage: UNK
     Dates: start: 2014
  39. OMEPRAZOLE [Concomitant]
     Active Substance: OMEPRAZOLE
     Dosage: UNK
     Dates: start: 2018
  40. UBIDECARENONE [Concomitant]
     Active Substance: UBIDECARENONE
     Dosage: UNK
     Dates: start: 2014
  41. RIBOFLAVIN [Concomitant]
     Active Substance: RIBOFLAVIN
     Dosage: UNK
     Dates: start: 2014
  42. POTASSIUM CHLORIDE [Concomitant]
     Active Substance: POTASSIUM CHLORIDE
     Dosage: UNK
     Dates: start: 2012
  43. MONTELUKAST SODIUM [Concomitant]
     Active Substance: MONTELUKAST SODIUM
     Dosage: UNK
     Dates: start: 2017
  44. HUMAN IMMUNOGLOBULIN G [Concomitant]
     Active Substance: HUMAN IMMUNOGLOBULIN G
     Dosage: UNK
     Dates: start: 201208
  45. ACETAMINOPHEN [Concomitant]
     Active Substance: ACETAMINOPHEN
     Dosage: UNK
     Dates: start: 2011
  46. CHOLECALCIFEROL [Concomitant]
     Active Substance: CHOLECALCIFEROL
     Dosage: UNK
     Dates: start: 2012
  47. LACTOBACILLUS ACIDOPHILUS [Concomitant]
     Active Substance: LACTOBACILLUS ACIDOPHILUS
     Dosage: UNK
     Dates: start: 20091119
  48. EMLA [Concomitant]
     Active Substance: LIDOCAINE\PRILOCAINE
     Dosage: UNK
     Dates: start: 200902
  49. MENAQUINONE-7 [Concomitant]
     Dosage: UNK
     Dates: start: 2012
  50. HEPARIN [Concomitant]
     Active Substance: HEPARIN SODIUM
     Dosage: UNK
     Dates: start: 2011
  51. IDURSULFASE [Concomitant]
     Active Substance: IDURSULFASE
     Dosage: UNK
     Dates: start: 2011
  52. SODIUM CHLORIDE [Concomitant]
     Active Substance: SODIUM CHLORIDE
     Dosage: UNK
     Dates: start: 201208
  53. MUPIROCIN [Concomitant]
     Active Substance: MUPIROCIN
     Dosage: UNK
     Dates: start: 20200710

REACTIONS (11)
  - Myoclonus [Recovered/Resolved]
  - Dysphagia [Recovered/Resolved]
  - Stomatitis [Recovered/Resolved]
  - Oral candidiasis [Recovered/Resolved]
  - Abdominal pain [Recovered/Resolved]
  - VIIth nerve injury [Recovered/Resolved]
  - Condition aggravated [Recovered/Resolved]
  - Periorbital oedema [Recovered/Resolved]
  - VIIth nerve injury [Recovered/Resolved]
  - Condition aggravated [Recovered/Resolved]
  - Somnolence [Recovered/Resolved]

NARRATIVE: CASE EVENT DATE: 20210406
